FAERS Safety Report 4332963-7 (Version None)
Quarter: 2004Q2

REPORT INFORMATION
  Report Type: 
  Country: None (occurrence: None)
  Receive Date: 20040405
  Receipt Date: 20040405
  Transmission Date: 20050107
  Serious: Yes (Life-Threatening, Other)
  Sender: FDA-Public Use
  Company Number: None

PATIENT
  Age: 39 Year
  Sex: Male
  Weight: 53.5244 kg

DRUGS (6)
  1. PAXIL [Suspect]
     Indication: ANXIETY
     Dosage: EVERYDAY ONCE Q DAY
     Dates: start: 20010801
  2. PAXIL [Suspect]
     Indication: BIPOLAR I DISORDER
     Dosage: EVERYDAY ONCE Q DAY
     Dates: start: 20010801
  3. PAXIL [Suspect]
     Indication: PANIC DISORDER
     Dosage: EVERYDAY ONCE Q DAY
     Dates: start: 20010801
  4. ZOLOFT [Suspect]
     Indication: ANXIETY
     Dosage: EVERY DAY ONCE A DAY
     Dates: start: 20011201
  5. ZOLOFT [Suspect]
     Indication: BIPOLAR I DISORDER
     Dosage: EVERY DAY ONCE A DAY
     Dates: start: 20011201
  6. ZOLOFT [Suspect]
     Indication: PANIC DISORDER
     Dosage: EVERY DAY ONCE A DAY
     Dates: start: 20011201

REACTIONS (2)
  - DRUG EFFECT DECREASED [None]
  - SUICIDAL IDEATION [None]
